FAERS Safety Report 8209089-5 (Version None)
Quarter: 2012Q1

REPORT INFORMATION
  Report Type: 
  Country: None (occurrence: None)
  Receive Date: 20120314
  Receipt Date: 20120306
  Transmission Date: 20120608
  Serious: Yes (Other)
  Sender: FDA-Public Use
  Company Number: US-JNJFOC-20120303840

PATIENT
  Sex: Female

DRUGS (17)
  1. FERROUS SULFATE TAB [Concomitant]
     Indication: BLOOD IRON
     Route: 048
  2. SPIRONOLACTONE [Concomitant]
     Indication: BLOOD PRESSURE
  3. VITAMIN D [Concomitant]
     Indication: HYPOVITAMINOSIS
     Route: 048
  4. ASPIRIN [Concomitant]
     Indication: ATRIAL FIBRILLATION
     Route: 048
  5. XARELTO [Suspect]
     Indication: ATRIAL FIBRILLATION
     Route: 048
     Dates: start: 20120201
  6. LANTUS [Concomitant]
  7. AMLODIPINE [Concomitant]
     Indication: CARDIAC DISORDER
  8. LEVOTHYROXINE SODIUM [Concomitant]
     Indication: THYROID THERAPY
     Route: 048
  9. LANTUS [Concomitant]
     Indication: DIABETES MELLITUS
  10. ALLOPURINOL [Concomitant]
     Indication: GOUT
  11. GABAPENTIN [Concomitant]
     Indication: NEUROPATHY PERIPHERAL
     Route: 048
  12. GLIPIZIDE [Concomitant]
     Indication: DIABETES MELLITUS
     Route: 048
  13. HYDRALAZINE HCL [Concomitant]
     Indication: BLOOD PRESSURE
     Route: 048
  14. DIOVAN [Concomitant]
     Indication: BLOOD PRESSURE
     Route: 048
  15. CARVEDILOL [Concomitant]
     Indication: CARDIAC DISORDER
  16. FUROSEMIDE [Concomitant]
     Indication: DIURETIC THERAPY
     Route: 048
  17. SIMVASTATIN [Concomitant]
     Indication: BLOOD CHOLESTEROL
     Route: 048

REACTIONS (3)
  - KIDNEY INFECTION [None]
  - CONTUSION [None]
  - LOCAL SWELLING [None]
